FAERS Safety Report 21637333 (Version 2)
Quarter: 2023Q2

REPORT INFORMATION
  Report Type: Report from Study
  Country: BR (occurrence: BR)
  Receive Date: 20221124
  Receipt Date: 20230516
  Transmission Date: 20230721
  Serious: Yes (Other)
  Sender: FDA-Public Use
  Company Number: BR-JNJFOC-20221138976

PATIENT
  Age: 6 Decade
  Sex: Female
  Weight: 62 kg

DRUGS (1)
  1. REMICADE [Suspect]
     Active Substance: INFLIXIMAB
     Indication: Crohn^s disease
     Route: 041
     Dates: start: 20210322, end: 2021

REACTIONS (3)
  - Tuberculosis [Unknown]
  - Hypersensitivity [Unknown]
  - Infusion related reaction [Unknown]
